FAERS Safety Report 18487878 (Version 3)
Quarter: 2021Q1

REPORT INFORMATION
  Report Type: Report from Study
  Country: US (occurrence: US)
  Receive Date: 20201111
  Receipt Date: 20210114
  Transmission Date: 20210419
  Serious: Yes (Hospitalization)
  Sender: FDA-Public Use
  Company Number: US-BIOGEN-2020BI00943342

PATIENT
  Age: 35 Year
  Sex: Female

DRUGS (4)
  1. TYSABRI [Suspect]
     Active Substance: NATALIZUMAB
     Route: 065
     Dates: start: 20150508, end: 20170623
  2. TYSABRI [Suspect]
     Active Substance: NATALIZUMAB
     Indication: MULTIPLE SCLEROSIS
     Route: 065
     Dates: start: 20110315, end: 20140320
  3. TYSABRI [Suspect]
     Active Substance: NATALIZUMAB
     Route: 065
  4. TYSABRI [Suspect]
     Active Substance: NATALIZUMAB
     Route: 065
     Dates: start: 20181210, end: 20200831

REACTIONS (1)
  - Multiple sclerosis relapse [Unknown]

NARRATIVE: CASE EVENT DATE: 202011
